FAERS Safety Report 25566317 (Version 2)
Quarter: 2025Q3

REPORT INFORMATION
  Report Type: Spontaneous
  Country: IN (occurrence: IN)
  Receive Date: 20250716
  Receipt Date: 20250807
  Transmission Date: 20251021
  Serious: Yes (Other)
  Sender: PFIZER
  Company Number: IN-PFIZER INC-202200690010

PATIENT
  Age: 69 Year
  Sex: Male

DRUGS (10)
  1. SUTENT [Suspect]
     Active Substance: SUNITINIB MALATE
     Indication: Metastatic renal cell carcinoma
     Route: 048
     Dates: start: 20211126
  2. SUTENT [Suspect]
     Active Substance: SUNITINIB MALATE
     Route: 048
  3. SUTENT [Suspect]
     Active Substance: SUNITINIB MALATE
     Route: 048
  4. SUTENT [Suspect]
     Active Substance: SUNITINIB MALATE
     Route: 048
  5. SUTENT [Suspect]
     Active Substance: SUNITINIB MALATE
     Dates: end: 202503
  6. SUTENT [Suspect]
     Active Substance: SUNITINIB MALATE
     Dosage: 37.5 MG, 1X/DAY
     Route: 048
  7. SUTENT [Suspect]
     Active Substance: SUNITINIB MALATE
     Route: 048
  8. LEVOTHYROXINE [Concomitant]
     Active Substance: LEVOTHYROXINE
     Dosage: 87.5 UG, 1X/DAY FOR 3 WEEKS
  9. LEVOTHYROXINE [Concomitant]
     Active Substance: LEVOTHYROXINE
     Dosage: 75 UG, 1X/DAY X 3 WEEKS
  10. DENOSUMAB [Concomitant]
     Active Substance: DENOSUMAB
     Route: 058

REACTIONS (9)
  - Femur fracture [Unknown]
  - Mouth ulceration [Unknown]
  - Platelet count decreased [Unknown]
  - Rash [Unknown]
  - Diarrhoea [Unknown]
  - Decreased appetite [Unknown]
  - Hypertension [Unknown]
  - Off label use [Unknown]
  - Product use issue [Unknown]

NARRATIVE: CASE EVENT DATE: 20220913
